FAERS Safety Report 8596329-6 (Version None)
Quarter: 2012Q3

REPORT INFORMATION
  Report Type: 
  Country: None (occurrence: None)
  Receive Date: 20120815
  Receipt Date: 20120809
  Transmission Date: 20120928
  Serious: Yes (Other)
  Sender: FDA-Public Use
  Company Number: JP-ELI_LILLY_AND_COMPANY-JP201207000042

PATIENT
  Sex: Male
  Weight: 68 kg

DRUGS (22)
  1. WARFARIN POTASSIUM [Concomitant]
     Dosage: 7.25 MG, QD
     Route: 048
     Dates: start: 20120617, end: 20120620
  2. WARFARIN POTASSIUM [Concomitant]
     Dosage: 7 MG, QD
     Route: 048
     Dates: start: 20120621, end: 20120710
  3. VOLTAREN-XR [Concomitant]
     Indication: PAIN
     Dosage: 37.5 MG, BID
     Route: 048
     Dates: end: 20120508
  4. LENDORMIN [Concomitant]
     Indication: INSOMNIA
     Dosage: 0.25 MG, QD
     Route: 048
     Dates: end: 20120508
  5. WARFARIN POTASSIUM [Concomitant]
     Dosage: 6 MG, QD
     Route: 048
     Dates: start: 20120531, end: 20120604
  6. WARFARIN POTASSIUM [Concomitant]
     Dosage: 5 MG, QD
     Route: 048
     Dates: start: 20120529, end: 20120530
  7. WARFARIN POTASSIUM [Concomitant]
     Dosage: 7 MG, QD
     Route: 048
     Dates: start: 20120605, end: 20120610
  8. WARFARIN POTASSIUM [Concomitant]
     Dosage: 4 MG, QD
     Route: 048
     Dates: start: 20120711, end: 20120717
  9. WARFARIN POTASSIUM [Concomitant]
     Dosage: 5 MG, QD
     Route: 048
     Dates: start: 20120718, end: 20120724
  10. WARFARIN POTASSIUM [Concomitant]
     Dosage: 6 MG, QD
     Route: 048
     Dates: start: 20120725
  11. BISOPROLOL FUMARATE [Concomitant]
     Indication: HEART VALVE REPLACEMENT
     Dosage: 0.625 MG, BID
     Route: 048
     Dates: end: 20120508
  12. WARFARIN POTASSIUM [Concomitant]
     Dosage: 4 MG, QD
     Route: 048
     Dates: start: 20120522, end: 20120528
  13. MIGLITOL [Concomitant]
     Indication: DIABETES MELLITUS
     Dosage: 50 MG, TID
     Route: 048
     Dates: end: 20120506
  14. FORTEO [Suspect]
     Indication: SCOLIOSIS
     Dosage: 20 UG, QD
     Route: 058
     Dates: start: 20120301
  15. WARFARIN POTASSIUM [Concomitant]
     Indication: HEART VALVE REPLACEMENT
     Dosage: 1 MG, BID
     Route: 048
  16. WARFARIN POTASSIUM [Concomitant]
     Dosage: 7.5 MG, QD
     Route: 048
     Dates: start: 20120611, end: 20120616
  17. WARFARIN POTASSIUM [Concomitant]
     Dosage: 2.5 MG, QD
     Route: 048
     Dates: start: 20120508, end: 20120514
  18. WARFARIN POTASSIUM [Concomitant]
     Dosage: 3 MG, QD
     Route: 048
     Dates: start: 20120515, end: 20120521
  19. MAGLAX [Concomitant]
     Indication: CONSTIPATION
     Dosage: 1 DF, TID
     Route: 048
     Dates: end: 20120508
  20. MUCOSTA [Concomitant]
     Indication: ABDOMINAL PAIN UPPER
     Dosage: 1 DF, QD
     Route: 048
     Dates: end: 20120508
  21. TAMBOCOR [Concomitant]
     Indication: HEART VALVE REPLACEMENT
     Dosage: 50 MG, BID
     Route: 048
  22. FAMOTIDINE [Concomitant]
     Indication: ABDOMINAL DISCOMFORT
     Dosage: 20 MG, QD
     Route: 048
     Dates: end: 20120508

REACTIONS (2)
  - INTERNATIONAL NORMALISED RATIO DECREASED [None]
  - OFF LABEL USE [None]
